FAERS Safety Report 18890817 (Version 1)
Quarter: 2021Q1

REPORT INFORMATION
  Report Type: Other
  Country: CA (occurrence: CA)
  Receive Date: 20210215
  Receipt Date: 20210215
  Transmission Date: 20210420
  Serious: Yes (Other)
  Sender: FDA-Public Use
  Company Number: CA-APOTEX-2021AP002582

PATIENT
  Age: 32 Year
  Sex: Male

DRUGS (1)
  1. VALACYCLOVIR [Suspect]
     Active Substance: VALACYCLOVIR HYDROCHLORIDE
     Indication: HERPES ZOSTER
     Dosage: 1000 MILLIGRAM, TID
     Route: 048

REACTIONS (3)
  - Spinal fracture [Recovering/Resolving]
  - Alcohol interaction [Recovering/Resolving]
  - Generalised tonic-clonic seizure [Recovering/Resolving]
